FAERS Safety Report 13582511 (Version 1)
Quarter: 2017Q2

REPORT INFORMATION
  Report Type: Spontaneous
  Country: JP (occurrence: JP)
  Receive Date: 20170525
  Receipt Date: 20170525
  Transmission Date: 20170830
  Serious: Yes (Life-Threatening, Hospitalization, Other)
  Sender: FDA-Public Use
  Company Number: JP-PFIZER INC-2017225434

PATIENT
  Age: 82 Year
  Sex: Female
  Weight: 44 kg

DRUGS (16)
  1. FOLIAMIN [Concomitant]
     Active Substance: FOLIC ACID
     Dosage: UNK
     Route: 048
     Dates: start: 2001, end: 20160625
  2. RHEUMATREX [Suspect]
     Active Substance: METHOTREXATE SODIUM
     Indication: RHEUMATOID ARTHRITIS
     Dosage: 8 MG, WEEKLY
     Route: 048
     Dates: start: 20090325, end: 20160623
  3. SINGULAIR [Concomitant]
     Active Substance: MONTELUKAST SODIUM
     Dosage: UNK
     Route: 048
     Dates: start: 201606, end: 20160625
  4. VALTREX [Concomitant]
     Active Substance: VALACYCLOVIR HYDROCHLORIDE
     Dosage: UNK
     Route: 048
     Dates: start: 20160624, end: 20160627
  5. VALTREX [Concomitant]
     Active Substance: VALACYCLOVIR HYDROCHLORIDE
     Dosage: UNK
     Route: 048
     Dates: start: 20160627, end: 20160706
  6. PREDONINE [Concomitant]
     Active Substance: PREDNISOLONE
     Indication: GASTROENTERITIS EOSINOPHILIC
     Dosage: TABLETS
     Route: 048
     Dates: start: 20060123, end: 20160628
  7. PREDONINE [Concomitant]
     Active Substance: PREDNISOLONE
     Dosage: INJECTION
     Dates: start: 20160629, end: 20160703
  8. CYTOTEC [Concomitant]
     Active Substance: MISOPROSTOL
     Dosage: 3 TABLETS, UNK
     Route: 048
     Dates: start: 20160617, end: 20160625
  9. AMOBAN [Concomitant]
     Active Substance: ZOPICLONE
     Dosage: UNK
     Route: 048
     Dates: start: 2007, end: 20160629
  10. PROGRAF [Concomitant]
     Active Substance: TACROLIMUS\TACROLIMUS ANHYDROUS
     Dosage: UNK
     Route: 048
     Dates: start: 20060417, end: 20160625
  11. METHYCOBAL [Concomitant]
     Active Substance: METHYLCOBALAMIN
     Dosage: 3 TABLETS, UNK
     Route: 048
     Dates: start: 20160624, end: 20160629
  12. PREDONINE [Concomitant]
     Active Substance: PREDNISOLONE
     Dosage: 9 MG, UNK
  13. PREDONINE [Concomitant]
     Active Substance: PREDNISOLONE
     Dosage: 14 MG, UNK
  14. TALION [Concomitant]
     Active Substance: BEPOTASTINE
     Dosage: 2 TABLETS, UNK
     Route: 048
     Dates: start: 201606, end: 20160625
  15. COLCHICINE. [Concomitant]
     Active Substance: COLCHICINE
     Dosage: 2 TABLETS, UNK
     Route: 048
     Dates: start: 201606, end: 20160625
  16. RABEPRAZOLE [Concomitant]
     Active Substance: RABEPRAZOLE
     Dosage: 2 TABLETS, UNK
     Route: 048
     Dates: start: 20160626, end: 20160630

REACTIONS (9)
  - Pneumocystis jirovecii pneumonia [Unknown]
  - Pancytopenia [Recovered/Resolved]
  - Ileal ulcer [Recovering/Resolving]
  - Herpes zoster [Unknown]
  - Mucous membrane disorder [Recovered/Resolved]
  - Bacteraemia [Unknown]
  - Leukopenia [Recovering/Resolving]
  - Pneumonia aspiration [Unknown]
  - Device related infection [Unknown]

NARRATIVE: CASE EVENT DATE: 20160623
